FAERS Safety Report 19040642 (Version 2)
Quarter: 2021Q1

REPORT INFORMATION
  Report Type: Spontaneous
  Country: JP (occurrence: JP)
  Receive Date: 20210322
  Receipt Date: 20210326
  Transmission Date: 20210420
  Serious: Yes (Other)
  Sender: FDA-Public Use
  Company Number: JP-PFIZER INC-2021261397

PATIENT
  Sex: Female

DRUGS (5)
  1. VIVIANT [Suspect]
     Active Substance: BAZEDOXIFENE
     Dosage: UNK
     Route: 048
     Dates: start: 20210218
  2. EDIROL [Suspect]
     Active Substance: ELDECALCITOL
     Dosage: UNK
     Route: 048
     Dates: start: 20210218
  3. ASPARA?CA [Suspect]
     Active Substance: CALCIUM ASPARTATE
     Dosage: UNK
     Route: 048
     Dates: start: 20210306
  4. GEMCITABINE HYDROCHLORIDE. [Suspect]
     Active Substance: GEMCITABINE HYDROCHLORIDE
     Indication: LUNG NEOPLASM MALIGNANT
     Dosage: TWICE A MONTH
     Dates: start: 201910
  5. ABRAXANE [Suspect]
     Active Substance: PACLITAXEL
     Indication: LUNG NEOPLASM MALIGNANT
     Dosage: TWICE A MONTH
     Dates: start: 201910

REACTIONS (6)
  - Pruritus [Unknown]
  - Dementia [Unknown]
  - Hip fracture [Unknown]
  - Insomnia [Unknown]
  - Vasodilatation [Unknown]
  - Varicose vein [Unknown]

NARRATIVE: CASE EVENT DATE: 20210219
